FAERS Safety Report 13956713 (Version 1)
Quarter: 2017Q3

REPORT INFORMATION
  Report Type: Spontaneous
  Country: DE (occurrence: DE)
  Receive Date: 20170911
  Receipt Date: 20170911
  Transmission Date: 20171128
  Serious: Yes (Other)
  Sender: FDA-Public Use
  Company Number: DE-ELI_LILLY_AND_COMPANY-DE201709001145

PATIENT
  Age: 69 Year
  Sex: Male

DRUGS (2)
  1. LISPRO [Suspect]
     Active Substance: INSULIN LISPRO
     Indication: DIABETES MELLITUS
     Dosage: UNK, UNKNOWN
     Route: 058
  2. HUMULIN N [Suspect]
     Active Substance: INSULIN HUMAN
     Indication: DIABETES MELLITUS
     Dosage: 36 IU, UNKNOWN
     Route: 058

REACTIONS (3)
  - Blindness [Unknown]
  - Incorrect dose administered [Unknown]
  - Blood glucose abnormal [Unknown]
